FAERS Safety Report 23193142 (Version 2)
Quarter: 2023Q4

REPORT INFORMATION
  Report Type: Spontaneous
  Country: GR (occurrence: GR)
  Receive Date: 20231116
  Receipt Date: 20231116
  Transmission Date: 20240110
  Serious: Yes (Other)
  Sender: FDA-Public Use
  Company Number: GR-PFIZER INC-PV202300184655

PATIENT
  Age: 37 Year
  Sex: Female

DRUGS (5)
  1. DOXYCYCLINE [Suspect]
     Active Substance: DOXYCYCLINE
     Indication: Leptospirosis
     Dosage: UNK
  2. CLINDAMYCIN PHOSPHATE [Suspect]
     Active Substance: CLINDAMYCIN PHOSPHATE
     Indication: Capnocytophaga infection
     Dosage: UNK
  3. METHYLPREDNISOLONE [Suspect]
     Active Substance: METHYLPREDNISOLONE
     Indication: Rash
     Dosage: UNK
  4. LEVOCETIRIZINE DIHYDROCHLORIDE [Suspect]
     Active Substance: LEVOCETIRIZINE DIHYDROCHLORIDE
     Indication: Rash
     Dosage: UNK
  5. ACYCLOVIR [Suspect]
     Active Substance: ACYCLOVIR
     Indication: Meningitis aseptic
     Dosage: UNK

REACTIONS (6)
  - Hypoxia [Unknown]
  - Myocarditis [Unknown]
  - Cutaneous vasculitis [Unknown]
  - Orthopnoea [Unknown]
  - Enzyme level increased [Unknown]
  - Brain natriuretic peptide increased [Unknown]
